FAERS Safety Report 16598539 (Version 1)
Quarter: 2019Q3

REPORT INFORMATION
  Report Type: Spontaneous
  Country: DE (occurrence: DE)
  Receive Date: 20190719
  Receipt Date: 20190719
  Transmission Date: 20191004
  Serious: Yes (Hospitalization)
  Sender: FDA-Public Use
  Company Number: DE-PFIZER INC-2019300861

PATIENT
  Age: 41 Year
  Sex: Female

DRUGS (4)
  1. IBUPROFEN. [Suspect]
     Active Substance: IBUPROFEN
     Dosage: 2-4 TABLETS AT A TIME, CA.15 X / MONTH FOR 17 YEARS
  2. IBUPROFEN. [Suspect]
     Active Substance: IBUPROFEN
     Dosage: AT CA. 15 DAYS/MONTH
  3. METAMIZOLE [Suspect]
     Active Substance: METAMIZOLE
     Dosage: UNK
  4. PARACETAMOL [Suspect]
     Active Substance: ACETAMINOPHEN
     Dosage: UNK

REACTIONS (5)
  - Overdose [Unknown]
  - Photosensitivity reaction [Unknown]
  - Product administration error [Unknown]
  - Headache [Unknown]
  - Nausea [Unknown]
